FAERS Safety Report 7296430-3 (Version None)
Quarter: 2011Q1

REPORT INFORMATION
  Report Type: 
  Country: None (occurrence: None)
  Receive Date: 20110216
  Receipt Date: 20110209
  Transmission Date: 20110831
  Serious: Yes (Death, Hospitalization, Other)
  Sender: FDA-Public Use
  Company Number: US-BRISTOL-MYERS SQUIBB COMPANY-15533763

PATIENT
  Age: 59 Year
  Sex: Female

DRUGS (9)
  1. VINCRISTINE [Suspect]
  2. RITUXIMAB [Suspect]
  3. CYCLOPHOSPHAMIDE [Suspect]
  4. DOXORUBICIN [Suspect]
  5. CARMUSTINE [Suspect]
     Dosage: 570 MG ON A DAY 6.
     Route: 042
  6. ETOPOSIDE [Suspect]
     Dosage: 1DF= 190 UNITS NOT SPECIFIED.FOR 8 DAYS 5-2.
     Route: 042
  7. DEXAMETHASONE [Suspect]
  8. CYTARABINE [Suspect]
     Dosage: FOR 8 DOSES ON DAYS 5--2.
     Route: 042
  9. MELPHALAN [Suspect]
     Dosage: 1 DF= 265 UNITS NOT SPECIFIED, ON DAY-1.
     Route: 042

REACTIONS (8)
  - PNEUMONIA [None]
  - ENDOTRACHEAL INTUBATION COMPLICATION [None]
  - BRADYCARDIA [None]
  - PNEUMOTHORAX [None]
  - CARDIAC ARREST [None]
  - PULMONARY OEDEMA [None]
  - RENAL FAILURE [None]
  - VENTRICULAR TACHYCARDIA [None]
